FAERS Safety Report 21946647 (Version 2)
Quarter: 2023Q1

REPORT INFORMATION
  Report Type: Spontaneous
  Country: US (occurrence: US)
  Receive Date: 20230202
  Receipt Date: 20230206
  Transmission Date: 20230417
  Serious: No
  Sender: FDA-Public Use
  Company Number: US-SUNOVION-2023SUN000191AA

PATIENT
  Age: 43 Year
  Sex: Female

DRUGS (1)
  1. LATUDA [Suspect]
     Active Substance: LURASIDONE HYDROCHLORIDE
     Indication: Bipolar disorder
     Dosage: 40 MG, QD
     Route: 048

REACTIONS (4)
  - Condition aggravated [Not Recovered/Not Resolved]
  - Crying [Not Recovered/Not Resolved]
  - Depressed mood [Not Recovered/Not Resolved]
  - Therapy interrupted [Unknown]
